FAERS Safety Report 4441628-2 (Version None)
Quarter: 2004Q3

REPORT INFORMATION
  Report Type: 
  Country: None (occurrence: None)
  Receive Date: 20040907
  Receipt Date: 20040824
  Transmission Date: 20050211
  Serious: Yes (Other)
  Sender: FDA-Public Use
  Company Number: 200416342US

PATIENT
  Sex: Female

DRUGS (1)
  1. CARAC [Suspect]
     Indication: BASAL CELL CARCINOMA
     Dosage: DOSE: NOT PROVIDED
     Dates: start: 20040428, end: 20040518

REACTIONS (4)
  - DRUG EXPOSURE DURING PREGNANCY [None]
  - FOETAL HEART RATE ABNORMAL [None]
  - PREGNANCY [None]
  - UTERINE DILATION AND CURETTAGE [None]
